FAERS Safety Report 16420973 (Version 1)
Quarter: 2019Q2

REPORT INFORMATION
  Report Type: Spontaneous
  Country: US (occurrence: US)
  Receive Date: 20190611
  Receipt Date: 20190611
  Transmission Date: 20190711
  Serious: Yes (Hospitalization)
  Sender: FDA-Public Use
  Company Number: None

PATIENT
  Sex: Female

DRUGS (6)
  1. MELOXICAM 15MG TABLETS [Concomitant]
     Dates: start: 20190531
  2. ANASTROZOLE 1MG TABLETS [Concomitant]
     Active Substance: ANASTROZOLE
     Dates: start: 20190411
  3. LABETALOL 100 MG TABLETS [Concomitant]
     Dates: start: 20181217
  4. AMLODIPINE [Concomitant]
     Active Substance: AMLODIPINE BESYLATE
     Dates: start: 20190306
  5. GLATIRAMER [Suspect]
     Active Substance: GLATIRAMER
     Indication: MULTIPLE SCLEROSIS
     Dosage: ?          OTHER FREQUENCY:THREE TIMES A WEEK;?
     Route: 058
  6. CHLORTHALIDONE 25MG TABLETS [Concomitant]
     Dates: start: 20190306

REACTIONS (3)
  - Peripheral swelling [None]
  - Blood potassium decreased [None]
  - Pain in extremity [None]
